FAERS Safety Report 8291388-2 (Version None)
Quarter: 2012Q2

REPORT INFORMATION
  Report Type: 
  Country: None (occurrence: None)
  Receive Date: 20120417
  Receipt Date: 20120409
  Transmission Date: 20120825
  Serious: Yes (Life-Threatening, Hospitalization, Disabling)
  Sender: FDA-Public Use
  Company Number: FR-GLAXOSMITHKLINE-B0720632A

PATIENT
  Sex: Female

DRUGS (4)
  1. IBUPROFEN [Concomitant]
     Indication: MIGRAINE
     Route: 048
     Dates: start: 20110421, end: 20110421
  2. NARATRIPTAN [Suspect]
     Indication: MIGRAINE
     Dosage: 1TAB SIX TIMES PER DAY
     Route: 048
     Dates: start: 20110421, end: 20110421
  3. GRAPEFRUIT JUICE [Suspect]
     Route: 048
  4. LEVOTHYROXINE SODIUM [Concomitant]
     Indication: HYPOTHYROIDISM
     Dosage: 100MCG PER DAY
     Route: 048

REACTIONS (11)
  - INTESTINAL OBSTRUCTION [None]
  - ABDOMINAL PAIN [None]
  - INTESTINAL ISCHAEMIA [None]
  - MULTI-ORGAN FAILURE [None]
  - METABOLIC ACIDOSIS [None]
  - VOMITING [None]
  - SEPTIC SHOCK [None]
  - CANDIDIASIS [None]
  - GASTROINTESTINAL NECROSIS [None]
  - OVERDOSE [None]
  - TOXICITY TO VARIOUS AGENTS [None]
